FAERS Safety Report 17956765 (Version 1)
Quarter: 2020Q2

REPORT INFORMATION
  Report Type: Spontaneous
  Country: US (occurrence: US)
  Receive Date: 20200628
  Receipt Date: 20200628
  Transmission Date: 20200714
  Serious: No
  Sender: FDA-Public Use
  Company Number: None

PATIENT
  Age: 42 Year
  Sex: Female
  Weight: 60.75 kg

DRUGS (1)
  1. PREGABALIN CAPSULES 25MG [Suspect]
     Active Substance: PREGABALIN
     Indication: NERVE INJURY
     Dosage: ?          QUANTITY:90 CAPSULE(S);?
     Route: 048
     Dates: start: 20200604, end: 20200628

REACTIONS (3)
  - Chapped lips [None]
  - Binge eating [None]
  - Constipation [None]

NARRATIVE: CASE EVENT DATE: 20200627
